FAERS Safety Report 17902310 (Version 2)
Quarter: 2020Q4

REPORT INFORMATION
  Report Type: Spontaneous
  Country: US (occurrence: US)
  Receive Date: 20200616
  Receipt Date: 20201222
  Transmission Date: 20210113
  Serious: Yes (Other)
  Sender: FDA-Public Use
  Company Number: US-SA-2020SA155017

PATIENT

DRUGS (1)
  1. ZANTAC [Suspect]
     Active Substance: RANITIDINE HYDROCHLORIDE
     Indication: DYSPEPSIA
     Dosage: UNK UNK, QD
     Dates: start: 200701, end: 201712

REACTIONS (1)
  - Oesophageal carcinoma [Unknown]

NARRATIVE: CASE EVENT DATE: 20170101
